FAERS Safety Report 17964983 (Version 1)
Quarter: 2020Q2

REPORT INFORMATION
  Report Type: Other
  Country: FR (occurrence: FR)
  Receive Date: 20200630
  Receipt Date: 20200630
  Transmission Date: 20200714
  Serious: Yes (Death, Hospitalization, Other)
  Sender: FDA-Public Use
  Company Number: FR-VALIDUS PHARMACEUTICALS LLC-FR-2020VAL000539

PATIENT

DRUGS (8)
  1. DOLIPRANE [Suspect]
     Active Substance: ACETAMINOPHEN
     Indication: PAIN
     Dosage: 3 DF, QD
     Route: 048
  2. LENALIDOMIDE [Suspect]
     Active Substance: LENALIDOMIDE
     Indication: PLASMA CELL MYELOMA
     Dosage: 21 DF, QM
     Route: 048
     Dates: start: 201711, end: 20200109
  3. ELIQUIS [Suspect]
     Active Substance: APIXABAN
     Indication: PROPHYLAXIS
     Dosage: 2 DF, QD
     Route: 048
     Dates: end: 20200112
  4. CANDESARTAN CILEXETIL. [Suspect]
     Active Substance: CANDESARTAN CILEXETIL
     Indication: HYPERTENSION
     Dosage: 8 MG, QD
     Route: 048
  5. FUROSEMIDE. [Suspect]
     Active Substance: FUROSEMIDE
     Indication: HYPERTENSION
     Dosage: 80 MG, QD
     Route: 048
  6. DEXAMETHASONE. [Suspect]
     Active Substance: DEXAMETHASONE
     Indication: PLASMA CELL MYELOMA
     Dosage: 1 DF, QW
     Route: 048
     Dates: start: 201711, end: 202001
  7. CORDARONE [Suspect]
     Active Substance: AMIODARONE HYDROCHLORIDE
     Indication: ATRIAL FIBRILLATION
     Dosage: 5 DF, QW
     Route: 048
  8. URBANYL [Suspect]
     Active Substance: CLOBAZAM
     Indication: PROPHYLAXIS
     Dosage: 1 DF, QD
     Route: 048

REACTIONS (1)
  - Acute myeloid leukaemia [Fatal]

NARRATIVE: CASE EVENT DATE: 202001
